FAERS Safety Report 6145022-8 (Version None)
Quarter: 2009Q2

REPORT INFORMATION
  Report Type: 
  Country: None (occurrence: None)
  Receive Date: 20090402
  Receipt Date: 20090209
  Transmission Date: 20091009
  Serious: No
  Sender: FDA-Public Use
  Company Number: 1000003867

PATIENT
  Age: 80 Year
  Sex: Female

DRUGS (9)
  1. BYSTOLIC [Suspect]
     Indication: HYPERTENSION
     Dosage: 20 MG (10 MG, 2 IN1 D), ORAL
     Route: 048
     Dates: start: 20081105
  2. AMARYL [Concomitant]
  3. LISINOPRIL [Concomitant]
  4. HYDROCHLOROTHIAZIDE [Concomitant]
  5. LEVOTHYROXINE SODIUM [Concomitant]
  6. ASPIRIN [Concomitant]
  7. NEURONTIN [Concomitant]
  8. HYDRALAZINE HCL [Concomitant]
  9. XANAX [Concomitant]

REACTIONS (1)
  - HAIR COLOUR CHANGES [None]
